FAERS Safety Report 7842798-6 (Version None)
Quarter: 2011Q4

REPORT INFORMATION
  Report Type: 
  Country: None (occurrence: None)
  Receive Date: 20111025
  Receipt Date: 20111012
  Transmission Date: 20120403
  Serious: Yes (Other)
  Sender: FDA-Public Use
  Company Number: US-BAYER-2010-009153

PATIENT
  Age: 17 Year
  Sex: Female
  Weight: 177 kg

DRUGS (11)
  1. TYLENOL-500 [Concomitant]
     Dosage: UNK
     Dates: start: 20080101
  2. IBUPROFEN (ADVIL) [Concomitant]
     Dosage: UNK
     Dates: start: 20030101
  3. DROSPIRENONE AND ETHINYL ESTRADIOL [Suspect]
     Indication: CONTRACEPTION
     Dosage: UNK
     Dates: start: 20070101, end: 20090801
  4. NEXIUM [Concomitant]
     Indication: ABDOMINAL PAIN UPPER
     Dosage: 40 MG, UNK
     Dates: start: 20090401
  5. YASMIN [Suspect]
     Indication: CONTRACEPTION
     Dosage: UNK
     Dates: start: 20070101, end: 20090101
  6. METFORMIN HCL [Concomitant]
     Dosage: 500 MG, UNK
     Route: 048
     Dates: start: 20080721
  7. TRAZODONE HYDROCHLORIDE [Concomitant]
     Indication: SLEEP DISORDER
     Dosage: 50 MG, HS
     Dates: start: 20080101, end: 20090101
  8. DARVOCET [Concomitant]
     Indication: PAIN
     Dosage: UNK
     Dates: start: 20090101
  9. NATALCARE [Concomitant]
     Dosage: UNK
     Dates: start: 20090101
  10. CITALOPRAM [Concomitant]
     Indication: DEPRESSION
     Dosage: 10 MG, QD
     Dates: start: 20070101, end: 20080101
  11. PHENERGAN HCL [Concomitant]
     Indication: NAUSEA
     Dosage: 25 MG, PRN
     Dates: start: 20090101

REACTIONS (5)
  - INJURY [None]
  - CHOLECYSTITIS CHRONIC [None]
  - BILIARY DYSKINESIA [None]
  - GALLBLADDER PAIN [None]
  - MENTAL DISORDER [None]
